FAERS Safety Report 9115242 (Version 1)
Quarter: 2013Q1

REPORT INFORMATION
  Report Type: Spontaneous
  Country: US (occurrence: None)
  Receive Date: 20130220
  Receipt Date: 20130220
  Transmission Date: 20140127
  Serious: Yes (Hospitalization)
  Sender: FDA-Public Use
  Company Number: None

PATIENT
  Sex: Male
  Weight: 87 kg

DRUGS (4)
  1. CYCLOPHOSPHAMIDE [Suspect]
  2. DOXORUBICIN HYDROCHLORIDE [Suspect]
  3. ETOPOSIDE (VP-16) [Suspect]
  4. VINCRISTINE SULFATE [Suspect]

REACTIONS (6)
  - Pyrexia [None]
  - Neutropenia [None]
  - Haemoglobin decreased [None]
  - Platelet count decreased [None]
  - Enterocutaneous fistula [None]
  - Disease recurrence [None]
